FAERS Safety Report 8850342 (Version 3)
Quarter: 2013Q1

REPORT INFORMATION
  Report Type: Report from Study
  Country: CA (occurrence: CA)
  Receive Date: 20121019
  Receipt Date: 20130201
  Transmission Date: 20140127
  Serious: Yes (Hospitalization)
  Sender: FDA-Public Use
  Company Number: CA-SHIRE-ALL1-2012-05112

PATIENT
  Age: 7 Year
  Sex: Male
  Weight: 26.1 kg

DRUGS (9)
  1. IDURSULFASE [Suspect]
     Indication: MUCOPOLYSACCHARIDOSIS II
     Dosage: 18 MG, 1X/WEEK
     Route: 041
     Dates: start: 20090629
  2. DIPHENHYDRAMINE [Concomitant]
     Indication: PREMEDICATION
     Dosage: 25 MG, 1X/WEEK
     Route: 048
     Dates: start: 20090629
  3. DIPHENHYDRAMINE [Concomitant]
     Dosage: 30 MG, UNKNOWN
     Route: 065
     Dates: start: 2009
  4. DIPHENHYDRAMINE [Concomitant]
     Dosage: 29 MG, 1X/WEEK
     Route: 048
     Dates: start: 2009
  5. DIPHENHYDRAMINE [Concomitant]
     Dosage: 25 MG, 1X/WEEK
     Route: 048
     Dates: start: 2009
  6. IBUPROFEN [Concomitant]
     Indication: PREMEDICATION
     Dosage: 210 MG, 1X/WEEK
     Route: 048
     Dates: start: 20090629
  7. IBUPROFEN [Concomitant]
     Dosage: 240 MG, UNKNOWN
     Route: 065
     Dates: start: 2009
  8. IBUPROFEN [Concomitant]
     Dosage: 230 MG, 1X/WEEK
     Route: 048
     Dates: start: 2009
  9. IBUPROFEN [Concomitant]
     Dosage: 210 MG, 1X/WEEK
     Route: 048
     Dates: start: 2009

REACTIONS (4)
  - Balance disorder [Recovered/Resolved]
  - Viral infection [Unknown]
  - Colitis [Recovered/Resolved]
  - Pyrexia [Recovered/Resolved]
